FAERS Safety Report 9121356 (Version 2)
Quarter: 2013Q2

REPORT INFORMATION
  Report Type: Spontaneous
  Country: US (occurrence: US)
  Receive Date: 20130225
  Receipt Date: 20130610
  Transmission Date: 20140414
  Serious: Yes (Other)
  Sender: FDA-Public Use
  Company Number: US-BAYER-2013-021038

PATIENT
  Age: 33 Year
  Sex: Female
  Weight: 96.15 kg

DRUGS (2)
  1. MIRENA [Suspect]
     Dosage: 20 MCG/24HR, CONT
     Route: 015
     Dates: start: 20060223, end: 20110829
  2. HYDROCHLOROTHIAZIDE [Concomitant]
     Dosage: 25 MG, UNK

REACTIONS (7)
  - Device dislocation [None]
  - Injury [None]
  - Emotional distress [None]
  - General physical health deterioration [None]
  - Pain [None]
  - Anhedonia [None]
  - Anxiety [None]
